FAERS Safety Report 10646424 (Version 1)
Quarter: 2014Q4

REPORT INFORMATION
  Report Type: Spontaneous
  Country: US (occurrence: None)
  Receive Date: 20141203
  Receipt Date: 20141203
  Transmission Date: 20150529
  Serious: No
  Sender: FDA-Public Use
  Company Number: ALL1-2008-02108

PATIENT
  Age: 13 Year
  Sex: Female

DRUGS (1)
  1. DAYTRANA [Suspect]
     Active Substance: METHYLPHENIDATE
     Dosage: UNK MG, (1X/DAY; QD?
     Route: 062
     Dates: start: 2006

REACTIONS (1)
  - Vitiligo [None]

NARRATIVE: CASE EVENT DATE: 200805
